FAERS Safety Report 8086957-9 (Version None)
Quarter: 2012Q1

REPORT INFORMATION
  Report Type: 
  Country: None (occurrence: None)
  Receive Date: 20120128
  Receipt Date: 20110615
  Transmission Date: 20120608
  Serious: No
  Sender: FDA-Public Use
  Company Number: US-ABBOTT-11P-163-0732751-00

PATIENT
  Age: 58 Year
  Sex: Female

DRUGS (7)
  1. HUMIRA [Suspect]
     Dosage: MAINTANANCE DOSE, 1 IN 2 WEEKS
  2. HUMIRA [Suspect]
     Dosage: 1 INJECTION DAY 29
     Route: 058
  3. XALATAN [Concomitant]
     Indication: PRODUCT USED FOR UNKNOWN INDICATION
     Dosage: 1 DROP DAILY IN BOTH EYES
     Route: 047
  4. HUMIRA [Suspect]
     Dosage: 80 MG (2 INJECTIONS DAY 15)
     Route: 058
  5. HUMIRA [Suspect]
     Indication: CROHN'S DISEASE
     Dosage: 160 MG (4 INJECTIONS DAY 1
     Route: 058
     Dates: start: 20110512, end: 20110512
  6. SYNTHROID [Concomitant]
     Indication: PRODUCT USED FOR UNKNOWN INDICATION
  7. POTASSIUM [Concomitant]
     Indication: PRODUCT USED FOR UNKNOWN INDICATION

REACTIONS (1)
  - INJECTION SITE PAIN [None]
